FAERS Safety Report 7205793-6 (Version None)
Quarter: 2010Q4

REPORT INFORMATION
  Report Type: 
  Country: None (occurrence: None)
  Receive Date: 20101231
  Receipt Date: 20101222
  Transmission Date: 20110411
  Serious: Yes (Hospitalization, Disabling, Other)
  Sender: FDA-Public Use
  Company Number: US-PFIZER INC-US-WYE-H18436310

PATIENT
  Sex: Male
  Weight: 76.2 kg

DRUGS (5)
  1. RAPAMUNE [Suspect]
     Indication: PROPHYLAXIS AGAINST TRANSPLANT REJECTION
     Dosage: 1 MG, 2X/DAY
     Route: 048
     Dates: start: 20050101
  2. ACETYLSALICYLIC ACID [Concomitant]
     Dosage: EVERY 4 HOURS
     Route: 065
  3. AMLODIPINE [Concomitant]
     Dosage: 5 MG, 1X/DAY
     Route: 065
  4. SIMVASTATIN [Concomitant]
     Dosage: 20 MG, 1X/DAY
     Route: 065
  5. VALSARTAN [Concomitant]
     Dosage: 160 MG, 1X/DAY
     Route: 065

REACTIONS (2)
  - HERNIA [None]
  - PROSTATE CANCER [None]
